FAERS Safety Report 10192235 (Version 1)
Quarter: 2014Q2

REPORT INFORMATION
  Report Type: Spontaneous
  Country: US (occurrence: US)
  Receive Date: 20140523
  Receipt Date: 20140523
  Transmission Date: 20141212
  Serious: No
  Sender: FDA-Public Use
  Company Number: US-BAYER-2014-066015

PATIENT
  Sex: Male

DRUGS (1)
  1. HELIXATE FS [Suspect]
     Route: 042

REACTIONS (2)
  - Contusion [Unknown]
  - Headache [Unknown]
